FAERS Safety Report 8791386 (Version 1)
Quarter: 2012Q4

REPORT INFORMATION
  Report Type: Spontaneous
  Country: US (occurrence: None)
  Receive Date: 20120914
  Receipt Date: 20120914
  Transmission Date: 20130627
  Serious: No
  Sender: FDA-Public Use
  Company Number: None

PATIENT
  Age: 79 Year
  Sex: Female
  Weight: 78.93 kg

DRUGS (2)
  1. SPIRIVA [Suspect]
     Indication: ASTHMA
     Dosage: 18 mcg ONCE DAILY INHALED
     Route: 055
     Dates: start: 20120717, end: 20120821
  2. SPIRIVA [Suspect]
     Indication: COPD
     Dosage: 18 mcg ONCE DAILY INHALED
     Route: 055
     Dates: start: 20120717, end: 20120821

REACTIONS (4)
  - Dyspnoea [None]
  - Secretion discharge [None]
  - Lung disorder [None]
  - Hypersensitivity [None]
